FAERS Safety Report 8730542 (Version 3)
Quarter: 2012Q4

REPORT INFORMATION
  Report Type: 
  Country: US (occurrence: US)
  Receive Date: 20120817
  Receipt Date: 20121102
  Transmission Date: 20130627
  Serious: No
  Sender: FDA-Public Use
  Company Number: US-ASTRAZENECA-2012SE56849

PATIENT
  Age: 53 Year
  Sex: Male

DRUGS (3)
  1. NEXIUM [Suspect]
     Route: 048
  2. UNSPECIFIED INGREDIENT [Suspect]
     Route: 065
  3. ASPIRIN [Concomitant]

REACTIONS (4)
  - Regurgitation [Unknown]
  - Aphagia [Unknown]
  - Gastric disorder [Unknown]
  - Drug dose omission [Unknown]
